FAERS Safety Report 16357550 (Version 1)
Quarter: 2019Q2

REPORT INFORMATION
  Report Type: Spontaneous
  Country: US (occurrence: US)
  Receive Date: 20190527
  Receipt Date: 20190527
  Transmission Date: 20190711
  Serious: No
  Sender: FDA-Public Use
  Company Number: US-MACLEODS PHARMACEUTICALS US LTD-MAC2019021314

PATIENT

DRUGS (1)
  1. SILDENAFIL CITRATE TABLETS 20 MG [Suspect]
     Active Substance: SILDENAFIL CITRATE
     Indication: ERECTILE DYSFUNCTION
     Dosage: 20 MILLIGRAM, WHENEVER NEEDED SINCE A YEAR (UNKNOWN DATE AND MONTH)
     Route: 048

REACTIONS (1)
  - Haematospermia [Not Recovered/Not Resolved]
